FAERS Safety Report 8479251-5 (Version None)
Quarter: 2012Q2

REPORT INFORMATION
  Report Type: 
  Country: None (occurrence: None)
  Receive Date: 20120629
  Receipt Date: 20110806
  Transmission Date: 20120825
  Serious: Yes (Other)
  Sender: FDA-Public Use
  Company Number: US-VIIV HEALTHCARE LIMITED-A0901831A

PATIENT
  Sex: Female
  Weight: 3 kg

DRUGS (5)
  1. RETROVIR [Concomitant]
     Indication: ANTIVIRAL TREATMENT
     Dosage: 1MGKH SINGLE DOSE
     Route: 064
     Dates: start: 20110512, end: 20110512
  2. KALETRA [Suspect]
     Indication: HIV INFECTION
     Dosage: 4TAB PER DAY
     Route: 064
     Dates: start: 20101006
  3. COMBIVIR [Suspect]
     Indication: HIV INFECTION
     Dosage: 2TAB PER DAY
     Route: 064
     Dates: start: 20101006, end: 20110512
  4. ATRIPLA [Suspect]
     Indication: HIV INFECTION
     Dosage: 1TAB PER DAY
     Route: 064
     Dates: start: 20071015, end: 20101006
  5. EPIVIR [Concomitant]
     Indication: ANTIVIRAL TREATMENT
     Dosage: 300MGD PER DAY
     Dates: start: 20110512, end: 20110514

REACTIONS (1)
  - FOETAL EXPOSURE DURING PREGNANCY [None]
